FAERS Safety Report 21847663 (Version 2)
Quarter: 2025Q2

REPORT INFORMATION
  Report Type: Spontaneous
  Country: ES (occurrence: ES)
  Receive Date: 20230111
  Receipt Date: 20250525
  Transmission Date: 20250716
  Serious: Yes (Life-Threatening, Other)
  Sender: AUROBINDO
  Company Number: ES-MLMSERVICE-20221212-3975895-1

PATIENT
  Age: 55 Year
  Sex: Male

DRUGS (3)
  1. ARIPIPRAZOLE [Suspect]
     Active Substance: ARIPIPRAZOLE
     Indication: Schizophrenia
     Route: 065
  2. PALIPERIDONE PALMITATE [Suspect]
     Active Substance: PALIPERIDONE PALMITATE
     Indication: Schizophrenia
     Route: 030
  3. HALOPERIDOL [Suspect]
     Active Substance: HALOPERIDOL
     Indication: Schizophrenia
     Route: 030

REACTIONS (8)
  - Neuroleptic malignant syndrome [Unknown]
  - Hyperthermia [Unknown]
  - Haemodynamic instability [Unknown]
  - Catatonia [Unknown]
  - Miosis [Unknown]
  - Muscle rigidity [Unknown]
  - Mutism [Unknown]
  - Urinary incontinence [Unknown]
